FAERS Safety Report 23675858 (Version 1)
Quarter: 2024Q1

REPORT INFORMATION
  Report Type: Spontaneous
  Country: US (occurrence: US)
  Receive Date: 20240327
  Receipt Date: 20240327
  Transmission Date: 20240409
  Serious: No
  Sender: FDA-Public Use
  Company Number: US-TEVA-VS-3161158

PATIENT
  Sex: Female

DRUGS (1)
  1. ETHINYL ESTRADIOL\ETHYNODIOL DIACETATE [Suspect]
     Active Substance: ETHINYL ESTRADIOL\ETHYNODIOL DIACETATE
     Indication: Product used for unknown indication
     Route: 065

REACTIONS (1)
  - Coeliac disease [Unknown]
